FAERS Safety Report 7509275-3 (Version None)
Quarter: 2011Q2

REPORT INFORMATION
  Report Type: 
  Country: None (occurrence: None)
  Receive Date: 20110527
  Receipt Date: 20110519
  Transmission Date: 20111010
  Serious: Yes (Life-Threatening)
  Sender: FDA-Public Use
  Company Number: JP-ROCHE-773122

PATIENT
  Sex: Female
  Weight: 50 kg

DRUGS (16)
  1. ACTEMRA [Suspect]
     Indication: RHEUMATOID ARTHRITIS
     Dosage: NOTE: THREE TIME ADMINISTERING.
     Route: 041
     Dates: start: 20110121, end: 20110218
  2. ONEALFA [Concomitant]
     Route: 048
     Dates: start: 20101026
  3. CRESTOR [Concomitant]
     Route: 048
     Dates: start: 20100322, end: 20110317
  4. ISONIAZID [Concomitant]
     Route: 048
     Dates: start: 20100817
  5. PYDOXAL [Concomitant]
     Route: 048
     Dates: start: 20100817
  6. LIMAPROST [Concomitant]
     Route: 048
     Dates: start: 20101026, end: 20110317
  7. SULFAMETHOXAZOLE [Concomitant]
     Route: 048
     Dates: start: 20100701, end: 20110101
  8. ASPIRIN [Concomitant]
     Route: 048
     Dates: start: 20001201
  9. CARVEDILOL [Concomitant]
     Route: 048
     Dates: start: 20001201
  10. LOXONIN [Concomitant]
     Route: 048
     Dates: start: 20100201, end: 20110317
  11. BIOFERMIN [Concomitant]
     Route: 048
     Dates: start: 20110112
  12. LEUPROLIDE ACETATE [Suspect]
     Indication: PROSTATE CANCER
     Route: 058
     Dates: start: 20110221, end: 20110221
  13. CANDESARTAN CILEXETIL [Concomitant]
     Route: 048
     Dates: start: 20001201
  14. LANSOPRAZOLE [Concomitant]
     Route: 048
     Dates: start: 20100518
  15. PROSTAL [Concomitant]
     Route: 048
     Dates: start: 20110124
  16. ASPARA [Concomitant]
     Route: 048
     Dates: start: 20101026, end: 20110317

REACTIONS (1)
  - INTERSTITIAL LUNG DISEASE [None]
